FAERS Safety Report 8910812 (Version 3)
Quarter: 2013Q1

REPORT INFORMATION
  Report Type: Spontaneous
  Country: US (occurrence: US)
  Receive Date: 20121116
  Receipt Date: 20130109
  Transmission Date: 20140127
  Serious: Yes (Other)
  Sender: FDA-Public Use
  Company Number: US-PFIZER INC-2012283802

PATIENT
  Age: 45 Year
  Sex: Male
  Weight: 126.98 kg

DRUGS (10)
  1. VIAGRA [Suspect]
     Indication: ERECTILE DYSFUNCTION
     Dosage: 50 MG, AS NEEDED
     Route: 048
  2. VIAGRA [Interacting]
     Indication: EJACULATION DISORDER
     Dosage: 100 MG, AS NEEDED
     Route: 048
     Dates: start: 2012
  3. LISINOPRIL [Suspect]
     Indication: BLOOD PRESSURE ABNORMAL
     Dosage: UNK
  4. ADDERALL [Interacting]
     Indication: SUBSTANCE-INDUCED MOOD DISORDER
     Dosage: 30 MG, UNK
  5. TOPROL XL [Suspect]
     Indication: BLOOD PRESSURE ABNORMAL
     Dosage: UNK
  6. INSULIN [Suspect]
     Indication: BLOOD GLUCOSE INCREASED
     Dosage: UNK
     Dates: start: 20121225
  7. LORTAB [Concomitant]
     Dosage: UNK
  8. LITHIUM [Concomitant]
     Dosage: UNK
  9. TRAZODONE [Concomitant]
     Dosage: UNK
  10. PROZAC [Concomitant]
     Dosage: UNK

REACTIONS (24)
  - Drug interaction [Unknown]
  - Erection increased [Unknown]
  - Erection increased [Recovered/Resolved]
  - Blood glucose increased [Unknown]
  - Blood glucose decreased [Unknown]
  - Hypotension [Unknown]
  - Testicular pain [Unknown]
  - Ejaculation failure [Unknown]
  - Headache [Unknown]
  - Dry mouth [Unknown]
  - Flushing [Unknown]
  - Fatigue [Unknown]
  - Skin discolouration [Unknown]
  - Testicular disorder [Unknown]
  - Testicular swelling [Unknown]
  - Ejaculation disorder [Unknown]
  - Drug administration error [Unknown]
  - Malaise [Unknown]
  - Hyperhidrosis [Unknown]
  - Flushing [Unknown]
  - Tremor [Unknown]
  - Abdominal pain [Unknown]
  - Penile pain [Unknown]
  - Asthenia [Unknown]
